FAERS Safety Report 14271077 (Version 1)
Quarter: 2017Q4

REPORT INFORMATION
  Report Type: Spontaneous
  Country: FR (occurrence: FR)
  Receive Date: 20171211
  Receipt Date: 20171211
  Transmission Date: 20180321
  Serious: Yes (Congenital Anomaly, Other)
  Sender: FDA-Public Use
  Company Number: FR-OTSUKA-2015_013575

PATIENT

DRUGS (1)
  1. ABILIFY [Suspect]
     Active Substance: ARIPIPRAZOLE
     Indication: PRODUCT USED FOR UNKNOWN INDICATION
     Dosage: 30 MG, QD
     Route: 065
     Dates: end: 20150426

REACTIONS (3)
  - Congenital multiplex arthrogryposis [Unknown]
  - Foetal distress syndrome [Unknown]
  - Paternal exposure timing unspecified [Recovered/Resolved]
